FAERS Safety Report 7574193-1 (Version None)
Quarter: 2011Q2

REPORT INFORMATION
  Report Type: 
  Country: None (occurrence: None)
  Receive Date: 20110621
  Receipt Date: 20110609
  Transmission Date: 20111010
  Serious: Yes (Hospitalization)
  Sender: FDA-Public Use
  Company Number: 2011-1491

PATIENT
  Age: 70 Year
  Sex: Male

DRUGS (1)
  1. APO-GO AMPOULES (APO-GO) (APOMORPHINE HYDROCHLORIDE) (APOMORPHINE HYDR [Suspect]
     Indication: PRODUCT USED FOR UNKNOWN INDICATION
     Dosage: 3 MG/HOUR FOR 20 HOURS/DAY (3 MG,CONTINUOUS INFUSION (20 H/DAY)),SUBCUTANEOUS
     Route: 058
     Dates: start: 20100317

REACTIONS (1)
  - MUSCLE SPASMS [None]
